FAERS Safety Report 8456874-0 (Version None)
Quarter: 2012Q2

REPORT INFORMATION
  Report Type: 
  Country: None (occurrence: None)
  Receive Date: 20120621
  Receipt Date: 20120618
  Transmission Date: 20120825
  Serious: Yes (Hospitalization)
  Sender: FDA-Public Use
  Company Number: US-B.I. PHARMACEUTICALS,INC./RIDGEFIELD-2012-BP-13956BP

PATIENT
  Sex: Female

DRUGS (7)
  1. METOPROLOL [Concomitant]
     Indication: ATRIAL FIBRILLATION
     Dates: start: 20110101
  2. CELEBREX [Concomitant]
     Indication: OSTEOARTHRITIS
     Dates: start: 20020101
  3. LESCOL [Concomitant]
     Indication: BLOOD CHOLESTEROL INCREASED
     Dates: start: 20070101
  4. SYNTHROID [Concomitant]
     Indication: HYPOTHYROIDISM
     Dates: start: 19920101
  5. SPIRIVA [Suspect]
     Indication: CHRONIC OBSTRUCTIVE PULMONARY DISEASE
     Dosage: 18 MCG
     Route: 055
     Dates: start: 20110601
  6. ASPIRIN [Concomitant]
     Indication: ATRIAL FIBRILLATION
     Dates: start: 20110101
  7. ACIPHEX [Concomitant]
     Indication: GASTRIC DISORDER
     Dates: start: 20110101

REACTIONS (3)
  - CEREBROVASCULAR ACCIDENT [None]
  - BALANCE DISORDER [None]
  - DISTURBANCE IN ATTENTION [None]
